FAERS Safety Report 19559060 (Version 1)
Quarter: 2021Q3

REPORT INFORMATION
  Report Type: Report from Study
  Country: US (occurrence: US)
  Receive Date: 20210715
  Receipt Date: 20210715
  Transmission Date: 20211014
  Serious: Yes (Other)
  Sender: FDA-Public Use
  Company Number: US-JNJFOC-20210721768

PATIENT

DRUGS (1)
  1. CONCERTA [Suspect]
     Active Substance: METHYLPHENIDATE HYDROCHLORIDE
     Indication: PRODUCT USED FOR UNKNOWN INDICATION
     Route: 065

REACTIONS (9)
  - Somnolence [Unknown]
  - Agitation [Unknown]
  - Coma [Unknown]
  - Respiratory depression [Unknown]
  - Hypotension [Unknown]
  - Bradycardia [Unknown]
  - Accidental exposure to product [Unknown]
  - Intentional product misuse [Unknown]
  - Seizure [Unknown]
